FAERS Safety Report 10590982 (Version 1)
Quarter: 2014Q4

REPORT INFORMATION
  Report Type: Spontaneous
  Country: BR (occurrence: BR)
  Receive Date: 20141118
  Receipt Date: 20141118
  Transmission Date: 20150529
  Serious: Yes (Other)
  Sender: FDA-Public Use
  Company Number: 2014SP003619

PATIENT
  Age: 17 Year
  Sex: Female
  Weight: 70 kg

DRUGS (4)
  1. OMNARIS [Suspect]
     Active Substance: CICLESONIDE
     Indication: RHINITIS
     Route: 045
     Dates: start: 20141016, end: 20141017
  2. NOVALGIN [Concomitant]
     Active Substance: METAMIZOLE SODIUM
  3. NIMESULIDE [Concomitant]
     Active Substance: NIMESULIDE
  4. AMOXICILLIN CLAVULANIC ACID [Concomitant]
     Active Substance: AMOXICILLIN\CLAVULANIC ACID

REACTIONS (5)
  - Face oedema [Recovered/Resolved]
  - Rhinitis [Recovered/Resolved]
  - Pruritus [Recovered/Resolved]
  - Condition aggravated [Recovered/Resolved]
  - Nasal oedema [Recovered/Resolved]

NARRATIVE: CASE EVENT DATE: 20141016
